FAERS Safety Report 6706141-8 (Version None)
Quarter: 2010Q2

REPORT INFORMATION
  Report Type: 
  Country: None (occurrence: None)
  Receive Date: 20100503
  Receipt Date: 20100423
  Transmission Date: 20101027
  Serious: Yes (Other)
  Sender: FDA-Public Use
  Company Number: GB-PFIZER INC-2010051563

PATIENT
  Age: 54 Year
  Sex: Male

DRUGS (1)
  1. ISTIN [Suspect]
     Dosage: 10 MG, UNK

REACTIONS (2)
  - PSORIASIS [None]
  - RASH [None]
